FAERS Safety Report 13865651 (Version 2)
Quarter: 2017Q3

REPORT INFORMATION
  Report Type: Spontaneous
  Country: BR (occurrence: BR)
  Receive Date: 20170814
  Receipt Date: 20170919
  Transmission Date: 20171127
  Serious: Yes (Other)
  Sender: FDA-Public Use
  Company Number: BR-SA-2017SA143347

PATIENT
  Sex: Female
  Weight: 98 kg

DRUGS (8)
  1. BENADRYL [Suspect]
     Active Substance: DIPHENHYDRAMINE HYDROCHLORIDE
     Route: 065
  2. TAXOTERE [Suspect]
     Active Substance: DOCETAXEL
     Indication: ENDOMETRIAL ADENOCARCINOMA
     Dosage: 145,2MG
     Route: 051
     Dates: start: 20170706, end: 20170706
  3. GEMCITABINE [Suspect]
     Active Substance: GEMCITABINE\GEMCITABINE HYDROCHLORIDE
     Dosage: DAY1
     Route: 065
     Dates: start: 20170713, end: 20170713
  4. TAXOTERE [Suspect]
     Active Substance: DOCETAXEL
     Indication: ENDOMETRIAL ADENOCARCINOMA
     Dosage: 145,2MG
     Route: 051
     Dates: start: 20170803, end: 20170803
  5. GEMCITABINE [Suspect]
     Active Substance: GEMCITABINE\GEMCITABINE HYDROCHLORIDE
     Dosage: DAY 8: 900MG/M?.
     Route: 065
  6. TAXOTERE [Suspect]
     Active Substance: DOCETAXEL
     Indication: ENDOMETRIAL ADENOCARCINOMA
     Dosage: 145,2MG
     Route: 051
     Dates: start: 20170713, end: 20170713
  7. TAXOTERE [Suspect]
     Active Substance: DOCETAXEL
     Indication: ENDOMETRIAL ADENOCARCINOMA
     Dosage: 145,2MG
     Route: 051
     Dates: start: 20170727, end: 20170727
  8. TAXOTERE [Suspect]
     Active Substance: DOCETAXEL
     Indication: ENDOMETRIAL ADENOCARCINOMA
     Dosage: 145,2MG
     Route: 051
     Dates: start: 20170817, end: 20170817

REACTIONS (15)
  - Palatal disorder [Unknown]
  - Skin reaction [Not Recovered/Not Resolved]
  - Asphyxia [Unknown]
  - Paronychia [Unknown]
  - Irritability [Unknown]
  - Abdominal distension [Unknown]
  - Skin exfoliation [Not Recovered/Not Resolved]
  - Product use issue [Unknown]
  - Anxiety [Unknown]
  - Dyspepsia [Unknown]
  - Decreased appetite [Unknown]
  - Feeling of despair [Unknown]
  - Diarrhoea [Unknown]
  - Fatigue [Unknown]
  - Constipation [Unknown]
